FAERS Safety Report 18153221 (Version 1)
Quarter: 2020Q3

REPORT INFORMATION
  Report Type: Spontaneous
  Country: GB (occurrence: GB)
  Receive Date: 20200815
  Receipt Date: 20200815
  Transmission Date: 20201103
  Serious: Yes (Other)
  Sender: FDA-Public Use
  Company Number: GB-009507513-2008GBR008538

PATIENT
  Age: 30 Year
  Sex: Female

DRUGS (4)
  1. NEXPLANON [Suspect]
     Active Substance: ETONOGESTREL
     Indication: CONTRACEPTION
     Dosage: 68 MILLIGRAM
     Route: 003
     Dates: start: 20170422, end: 20200421
  2. DESOGESTREL [Concomitant]
     Active Substance: DESOGESTREL
     Indication: PRODUCT USED FOR UNKNOWN INDICATION
     Dosage: UNK
     Route: 065
  3. PROGESTERONE. [Suspect]
     Active Substance: PROGESTERONE
     Indication: CONTRACEPTION
     Dosage: PROGESTERONE ONLY PILL (POP), MISSED 2 DOSES
     Route: 065
  4. SERTRALINE HYDROCHLORIDE. [Concomitant]
     Active Substance: SERTRALINE HYDROCHLORIDE
     Indication: PRODUCT USED FOR UNKNOWN INDICATION
     Dosage: UNK
     Route: 065

REACTIONS (4)
  - Pregnancy on contraceptive [Recovered/Resolved with Sequelae]
  - Amenorrhoea [Unknown]
  - Maternal exposure during pregnancy [Unknown]
  - Expired product administered [Unknown]

NARRATIVE: CASE EVENT DATE: 20200622
